FAERS Safety Report 5945813-X (Version None)
Quarter: 2008Q4

REPORT INFORMATION
  Report Type: 
  Country: None (occurrence: None)
  Receive Date: 20081104
  Receipt Date: 20081020
  Transmission Date: 20090506
  Serious: Yes (Hospitalization)
  Sender: FDA-Public Use
  Company Number: 2008US002958

PATIENT
  Age: 23 Year
  Sex: Female

DRUGS (5)
  1. PROGRAF [Suspect]
     Indication: RENAL TRANSPLANT
     Dosage: 5 MG, BID, ORAL
     Route: 048
     Dates: start: 20060307
  2. SIMULECT [Concomitant]
  3. SOLU-MEDROL [Concomitant]
  4. CELLCEPT [Concomitant]
  5. PREDNISONE [Concomitant]

REACTIONS (2)
  - DIABETES MELLITUS [None]
  - HYPEROSMOLAR STATE [None]
